FAERS Safety Report 8206930-7 (Version None)
Quarter: 2012Q1

REPORT INFORMATION
  Report Type: 
  Country: None (occurrence: None)
  Receive Date: 20120312
  Receipt Date: 20120307
  Transmission Date: 20120608
  Serious: Yes (Death, Hospitalization, Other)
  Sender: FDA-Public Use
  Company Number: GB-2010-0467

PATIENT
  Age: 71 Year
  Sex: Female

DRUGS (2)
  1. NAVELBINE [Suspect]
     Indication: ADENOCARCINOMA
     Dates: start: 20090901, end: 20091001
  2. CISPLATIN [Suspect]
     Indication: ADENOCARCINOMA
     Dates: start: 20090901, end: 20091001

REACTIONS (3)
  - BRONCHOPNEUMONIA [None]
  - PNEUMONIA [None]
  - NEUTROPENIC SEPSIS [None]
